FAERS Safety Report 4923589-2 (Version None)
Quarter: 2006Q1

REPORT INFORMATION
  Report Type: 
  Country: None (occurrence: None)
  Receive Date: 20060221
  Receipt Date: 20060209
  Transmission Date: 20060701
  Serious: Yes (Other)
  Sender: FDA-Public Use
  Company Number: 2006020660

PATIENT
  Age: 16 Year
  Sex: Female
  Weight: 80.7403 kg

DRUGS (4)
  1. VIBRAMYCIN [Suspect]
     Indication: ACNE
     Dates: start: 20060101
  2. ABILIFY [Suspect]
     Indication: MOOD SWINGS
  3. PROZAC [Suspect]
     Indication: ILL-DEFINED DISORDER
     Dosage: ORAL
     Route: 048
  4. LORAZEPAM [Suspect]
     Indication: SLEEP DISORDER

REACTIONS (7)
  - AFFECTIVE DISORDER [None]
  - DISEASE RECURRENCE [None]
  - DRUG INTERACTION [None]
  - INAPPROPRIATE AFFECT [None]
  - MOOD SWINGS [None]
  - PERSONALITY CHANGE DUE TO A GENERAL MEDICAL CONDITION [None]
  - SUICIDAL IDEATION [None]
